FAERS Safety Report 8822271 (Version 2)
Quarter: 2012Q4

REPORT INFORMATION
  Report Type: 
  Country: JP (occurrence: JP)
  Receive Date: 20121003
  Receipt Date: 20121024
  Transmission Date: 20130627
  Serious: Yes (Death, Hospitalization, Other)
  Sender: FDA-Public Use
  Company Number: PHHY2012JP071528

PATIENT
  Age: 93 Year
  Sex: Female

DRUGS (11)
  1. RIVASTIGMIN [Suspect]
     Indication: DEMENTIA ALZHEIMER^S TYPE
     Dosage: 4.5 mg, Daily
     Route: 062
     Dates: start: 20120806, end: 20120811
  2. GASLON [Concomitant]
  3. MAGMITT KENEI [Concomitant]
  4. MYSLEE [Concomitant]
  5. DEPAS [Concomitant]
  6. BAYASPIRIN [Concomitant]
  7. RACOL-NF [Concomitant]
  8. GRAMALIL [Concomitant]
     Dates: start: 20120718, end: 20120814
  9. HIRNAMIN [Concomitant]
     Dates: start: 20120718, end: 20120814
  10. YOKUKAN-SAN [Concomitant]
     Dates: start: 20120718, end: 20120814
  11. LOXONIN [Concomitant]
     Dates: start: 20120817

REACTIONS (8)
  - Acute respiratory failure [Fatal]
  - Respiratory disorder [Unknown]
  - Lip swelling [Recovering/Resolving]
  - Erythema [Recovering/Resolving]
  - Feeling hot [Recovering/Resolving]
  - Pyrexia [Unknown]
  - Dermatitis allergic [Unknown]
  - Nausea [Unknown]
